FAERS Safety Report 9311020 (Version 1)
Quarter: 2013Q2

REPORT INFORMATION
  Report Type: Report from Study
  Country: CA (occurrence: CA)
  Receive Date: 20130528
  Receipt Date: 20130528
  Transmission Date: 20140414
  Serious: Yes (Other)
  Sender: FDA-Public Use
  Company Number: CA-JNJFOC-20130300645

PATIENT
  Sex: Female
  Weight: 55.9 kg

DRUGS (6)
  1. REMICADE [Suspect]
     Indication: CROHN^S DISEASE
     Route: 042
  2. IMURAN [Concomitant]
     Route: 065
  3. FLAGYL [Concomitant]
     Route: 065
  4. CIPROLEX [Concomitant]
     Route: 065
  5. IRON [Concomitant]
     Route: 065
  6. ESOMEPRAZOLE [Concomitant]
     Route: 065

REACTIONS (1)
  - Fistula [Unknown]
